FAERS Safety Report 9492514 (Version 2)
Quarter: 2013Q3

REPORT INFORMATION
  Report Type: Spontaneous
  Country: GB (occurrence: GB)
  Receive Date: 20130830
  Receipt Date: 20130830
  Transmission Date: 20140515
  Serious: Yes (Death)
  Sender: FDA-Public Use
  Company Number: GB-ABBOTT-13P-167-1076674-00

PATIENT
  Sex: Male

DRUGS (1)
  1. DUODOPA [Suspect]
     Indication: PRODUCT USED FOR UNKNOWN INDICATION
     Dates: start: 20080427, end: 20130412

REACTIONS (5)
  - Intestinal obstruction [Fatal]
  - Pneumonia aspiration [Fatal]
  - Gastrointestinal necrosis [Fatal]
  - Parkinson^s disease [Fatal]
  - Colitis ulcerative [Fatal]
